FAERS Safety Report 9792174 (Version 2)
Quarter: 2014Q1

REPORT INFORMATION
  Report Type: Spontaneous
  Country: SE (occurrence: SE)
  Receive Date: 20140102
  Receipt Date: 20140310
  Transmission Date: 20141002
  Serious: Yes (Hospitalization, Other)
  Sender: FDA-Public Use
  Company Number: CHNY2013SE002897

PATIENT
  Sex: Female

DRUGS (1)
  1. TEGRETOL RETARD [Suspect]
     Dosage: (MOTHER DOSE: 1 DF, BID)
     Route: 064

REACTIONS (2)
  - Neonatal cholestasis [Not Recovered/Not Resolved]
  - Jaundice neonatal [Not Recovered/Not Resolved]
